FAERS Safety Report 5613147-9 (Version None)
Quarter: 2008Q1

REPORT INFORMATION
  Report Type: 
  Country: None (occurrence: None)
  Receive Date: 20080204
  Receipt Date: 20080125
  Transmission Date: 20080703
  Serious: Yes (Death)
  Sender: FDA-Public Use
  Company Number: US-ABBOTT-08P-163-0435142-00

PATIENT
  Age: 22 Year
  Sex: Female

DRUGS (6)
  1. MORPHINE [Suspect]
     Indication: DRUG USE FOR UNKNOWN INDICATION
     Dosage: OVERDOSE: UNKNOWN DOSE
     Dates: start: 20071101, end: 20071101
  2. LEXAPRO [Suspect]
     Indication: DEPRESSION
     Route: 048
     Dates: end: 20071101
  3. LEXAPRO [Suspect]
     Indication: ANXIETY
  4. CODEINE [Suspect]
     Indication: DRUG USE FOR UNKNOWN INDICATION
     Dosage: OVERDOSE: UNKNOWN DOSE
     Dates: start: 20071101, end: 20071101
  5. DIAZEPAM [Suspect]
     Indication: DRUG USE FOR UNKNOWN INDICATION
     Dosage: OVERDOSE: UNKNOWN DOSE
     Dates: start: 20071101
  6. DIAZEPAM [Suspect]
     Dates: start: 20071101, end: 20071101

REACTIONS (3)
  - ANTIDEPRESSANT DRUG LEVEL ABOVE THERAPEUTIC [None]
  - COMPLETED SUICIDE [None]
  - OVERDOSE [None]
